FAERS Safety Report 22887877 (Version 4)
Quarter: 2024Q4

REPORT INFORMATION
  Report Type: Spontaneous
  Country: US (occurrence: US)
  Receive Date: 20230831
  Receipt Date: 20241224
  Transmission Date: 20250115
  Serious: No
  Sender: IPSEN BIOPHARMACEUTICALS, INC.
  Company Number: US-Ipsen Biopharmaceuticals, Inc.-2023-20623

PATIENT
  Age: 63 Year
  Sex: Female
  Weight: 128 kg

DRUGS (25)
  1. TAZVERIK [Suspect]
     Active Substance: TAZEMETOSTAT HYDROBROMIDE
     Indication: Follicular lymphoma
     Dosage: 800 MG TWICE DAILY
     Route: 048
     Dates: start: 20230414
  2. HUMALOG [Concomitant]
     Active Substance: INSULIN LISPRO
  3. TRESIBA [Concomitant]
     Active Substance: INSULIN DEGLUDEC
  4. TRULICITY [Concomitant]
     Active Substance: DULAGLUTIDE
  5. AMLODIPINE [Concomitant]
     Active Substance: AMLODIPINE BESYLATE
  6. ZETIA [Concomitant]
     Active Substance: EZETIMIBE
  7. METFORMIN [Concomitant]
     Active Substance: METFORMIN HYDROCHLORIDE
  8. FENOFIBRIC ACID [Concomitant]
     Active Substance: FENOFIBRIC ACID
  9. PLAVIX [Concomitant]
     Active Substance: CLOPIDOGREL BISULFATE
  10. METOPROLOL TARTRATE [Concomitant]
     Active Substance: METOPROLOL TARTRATE
  11. GABAPENTIN [Concomitant]
     Active Substance: GABAPENTIN
  12. FUROSEMIDE [Concomitant]
     Active Substance: FUROSEMIDE
  13. MICARDIS [Concomitant]
     Active Substance: TELMISARTAN
  14. ROSUVASTATIN [Concomitant]
     Active Substance: ROSUVASTATIN
  15. VITAMIN D3 [Concomitant]
     Active Substance: CHOLECALCIFEROL
  16. ZOFRAN [Concomitant]
     Active Substance: ONDANSETRON HYDROCHLORIDE
  17. BENADRYL [Concomitant]
     Active Substance: DIPHENHYDRAMINE HYDROCHLORIDE
  18. DRAMAMINE [Concomitant]
     Active Substance: DIMENHYDRINATE
  19. PEPCID [Concomitant]
     Active Substance: FAMOTIDINE
  20. ZITHROMAX [Concomitant]
     Active Substance: AZITHROMYCIN DIHYDRATE
  21. BENZONATATE [Concomitant]
     Active Substance: BENZONATATE
  22. PREDNISONE [Concomitant]
     Active Substance: PREDNISONE
  23. DIPHENHYDRAMINE [Concomitant]
     Active Substance: DIPHENHYDRAMINE
  24. FLEXERIL [Concomitant]
     Active Substance: CYCLOBENZAPRINE HYDROCHLORIDE
  25. POTASSIUM CHLORIDE [Concomitant]
     Active Substance: POTASSIUM CHLORIDE

REACTIONS (12)
  - Fatigue [Not Recovered/Not Resolved]
  - Asthenia [Unknown]
  - Abdominal pain [Recovering/Resolving]
  - Faeces discoloured [Not Recovered/Not Resolved]
  - Abdominal discomfort [Unknown]
  - Decreased appetite [Unknown]
  - Dyspepsia [Unknown]
  - Fatigue [Unknown]
  - Regurgitation [Unknown]
  - Dizziness [Recovering/Resolving]
  - Diarrhoea [Recovering/Resolving]
  - Product dose omission issue [Unknown]

NARRATIVE: CASE EVENT DATE: 20241102
